FAERS Safety Report 12312616 (Version 2)
Quarter: 2016Q3

REPORT INFORMATION
  Report Type: Spontaneous
  Country: JP (occurrence: JP)
  Receive Date: 20160428
  Receipt Date: 20160715
  Transmission Date: 20161109
  Serious: Yes (Life-Threatening, Hospitalization)
  Sender: FDA-Public Use
  Company Number: JP-009507513-1603JPN012335

PATIENT
  Age: 65 Year
  Sex: Female
  Weight: 44 kg

DRUGS (7)
  1. MAO-BUSHI-SAISHIN-TO [Suspect]
     Active Substance: HERBALS
     Indication: SEASONAL ALLERGY
     Dosage: UNK, FORMULATION POR
     Route: 048
     Dates: start: 20160316, end: 20160319
  2. NEORAL [Suspect]
     Active Substance: CYCLOSPORINE
     Indication: APLASTIC ANAEMIA
     Dosage: 100 MG, DAILY
     Route: 048
     Dates: end: 20160319
  3. NORVASC [Concomitant]
     Active Substance: AMLODIPINE BESYLATE
     Indication: HYPERTENSION
     Dosage: 5 MG, DAILY
     Route: 048
     Dates: end: 20160319
  4. MAGNESIUM OXIDE. [Concomitant]
     Active Substance: MAGNESIUM OXIDE
     Indication: CONSTIPATION
     Dosage: 1000 MG, DAILY
     Route: 048
     Dates: end: 20160319
  5. ZETIA [Suspect]
     Active Substance: EZETIMIBE
     Indication: HYPERCHOLESTEROLAEMIA
     Dosage: 10 MG, QD
     Route: 048
     Dates: start: 20160315, end: 20160319
  6. TALION (BEPOTASTINE BESYLATE) [Suspect]
     Active Substance: BEPOTASTINE
     Indication: SEASONAL ALLERGY
     Dosage: UNK, FORMULATION POR
     Route: 048
     Dates: start: 20160316, end: 20160319
  7. MEVALOTIN [Concomitant]
     Active Substance: PRAVASTATIN SODIUM
     Indication: HYPERCHOLESTEROLAEMIA
     Dosage: 20 MG, DAILY
     Route: 048
     Dates: end: 20160319

REACTIONS (5)
  - Epistaxis [Recovered/Resolved]
  - Platelet count decreased [Recovered/Resolved]
  - Petechiae [Recovered/Resolved]
  - Purpura [Recovered/Resolved]
  - Mouth haemorrhage [Recovered/Resolved]

NARRATIVE: CASE EVENT DATE: 20160320
